FAERS Safety Report 4655142-2 (Version None)
Quarter: 2005Q2

REPORT INFORMATION
  Report Type: 
  Country: None (occurrence: None)
  Receive Date: 20050505
  Receipt Date: 20050211
  Transmission Date: 20051028
  Serious: Yes (Hospitalization)
  Sender: FDA-Public Use
  Company Number: 10267

PATIENT
  Age: 69 Year
  Sex: Male

DRUGS (15)
  1. METHOTREXATE [Suspect]
     Indication: RHEUMATOID ARTHRITIS
     Dosage: 10 MG WEEKLY
     Route: 058
     Dates: start: 20021101
  2. ETANERCEPT [Suspect]
     Indication: RHEUMATOID ARTHRITIS
     Dosage: 25 MG 2/WK
     Route: 058
     Dates: start: 20030402, end: 20030402
  3. PREDNISOLONE [Concomitant]
  4. CELECOXIB [Concomitant]
  5. DOMPERIDONE [Concomitant]
  6. PROPRANOLOL HYDROCHLORIDE [Concomitant]
  7. PANTOPRAZOLE SODIUM [Concomitant]
  8. METOCLOPRAMIDE HYDROCHLORIDE [Concomitant]
  9. FUROSEMIDE [Concomitant]
  10. CELECOXIB [Concomitant]
  11. FOLIC ACID [Concomitant]
  12. DIAZEPAM [Concomitant]
  13. LORAZEPAM [Concomitant]
  14. NALOXONE HCL [Concomitant]
  15. DIMENHYDRINATE [Concomitant]

REACTIONS (2)
  - ERYSIPELAS [None]
  - SEPTIC ARTHRITIS STAPHYLOCOCCAL [None]
